FAERS Safety Report 14285860 (Version 1)
Quarter: 2017Q4

REPORT INFORMATION
  Report Type: Spontaneous
  Country: US (occurrence: US)
  Receive Date: 20171214
  Receipt Date: 20171214
  Transmission Date: 20180321
  Serious: No
  Sender: FDA-Public Use
  Company Number: US-ZYDUS-016327

PATIENT
  Age: 63 Year
  Sex: Male

DRUGS (1)
  1. ACAMPROSATE/ACAMPROSATE CALCIUM [Suspect]
     Active Substance: ACAMPROSATE CALCIUM
     Indication: TINNITUS
     Route: 048
     Dates: start: 20170819

REACTIONS (6)
  - Product use in unapproved indication [Unknown]
  - Dyspnoea [Recovered/Resolved]
  - Chest pain [Recovered/Resolved]
  - Abnormal dreams [Unknown]
  - Tinnitus [Unknown]
  - Nightmare [Unknown]

NARRATIVE: CASE EVENT DATE: 20170819
